FAERS Safety Report 19751558 (Version 3)
Quarter: 2021Q4

REPORT INFORMATION
  Report Type: Report from Study
  Country: ES (occurrence: ES)
  Receive Date: 20210826
  Receipt Date: 20211208
  Transmission Date: 20220303
  Serious: Yes (Hospitalization)
  Sender: FDA-Public Use
  Company Number: ES-ROCHE-2779802

PATIENT
  Age: 68 Year
  Sex: Female

DRUGS (8)
  1. PACLITAXEL [Suspect]
     Active Substance: PACLITAXEL
     Indication: HER2 positive breast cancer
     Dosage: 172 MILLIGRAM (LAST DOSE OF PACLITAXEL)
     Route: 042
     Dates: start: 20201209, end: 20210129
  2. PACLITAXEL [Suspect]
     Active Substance: PACLITAXEL
     Dosage: 90 MILLIGRAM (LAST DOSE OF PACLITAXEL)
     Route: 042
     Dates: start: 20201209
  3. TRASTUZUMAB [Suspect]
     Active Substance: TRASTUZUMAB
     Indication: HER2 positive breast cancer
     Dosage: 534 MILLIGRAM (ON 22/JAN/2021, SHE RECEIVED LAST DOSE OF TRASTUZUMAB)
     Route: 042
     Dates: start: 20201209, end: 20210122
  4. TRASTUZUMAB [Suspect]
     Active Substance: TRASTUZUMAB
     Dosage: ON DAY 1 AT THE DOSE OF 8 MG/KG LOADING DOSE I.V., THEN 6 MG/KG ON 22/JAN/2021,
     Route: 042
     Dates: start: 20201209
  5. ATEZOLIZUMAB [Suspect]
     Active Substance: ATEZOLIZUMAB
     Indication: HER2 positive breast cancer
     Dosage: 1200 MILLIGRAM (ON 22/JAN/2021, SHE RECEIVED LAST DOSE OF ATEZOLIZUMAB)
     Route: 041
     Dates: start: 20200924, end: 20210122
  6. CARBOPLATIN [Suspect]
     Active Substance: CARBOPLATIN
     Indication: HER2 positive breast cancer
     Dosage: 251.36 MILLIGRAM (ON 29/JAN/2021, SHE RECEIVED LAST DOSE OF CARBOPLATIN)
     Route: 042
     Dates: start: 20201209
  7. PERTUZUMAB [Suspect]
     Active Substance: PERTUZUMAB
     Indication: HER2 positive breast cancer
     Dosage: 420 MILLIGRAM (ON 22/JAN/2021, SHE RECEIVED LAST DOSE OF PERTUZUMAB)
     Route: 042
     Dates: start: 20201209, end: 20210122
  8. PERTUZUMAB [Suspect]
     Active Substance: PERTUZUMAB
     Dosage: DAY 1 AT THE DOSE OF 840 MG LOADING DOSE I.V., THEN 420 MG
     Route: 042
     Dates: start: 20201209

REACTIONS (1)
  - Acute kidney injury [Recovered/Resolved with Sequelae]

NARRATIVE: CASE EVENT DATE: 20210221
